FAERS Safety Report 15694084 (Version 1)
Quarter: 2018Q4

REPORT INFORMATION
  Report Type: Spontaneous
  Country: US (occurrence: US)
  Receive Date: 20181206
  Receipt Date: 20181206
  Transmission Date: 20190205
  Serious: No
  Sender: FDA-Public Use
  Company Number: US-VIIV HEALTHCARE LIMITED-US2018GSK216583

PATIENT
  Age: 54 Year
  Sex: Male

DRUGS (3)
  1. DESCOVY [Suspect]
     Active Substance: EMTRICITABINE\TENOFOVIR ALAFENAMIDE FUMARATE
     Indication: HIV INFECTION
     Dosage: UNK, QD
     Route: 048
     Dates: start: 20170907
  2. TADALAFIL. [Concomitant]
     Active Substance: TADALAFIL
     Dosage: 5 MG, QD
  3. TIVICAY [Suspect]
     Active Substance: DOLUTEGRAVIR SODIUM
     Indication: HIV INFECTION
     Dosage: 50 MG, QD
     Route: 048
     Dates: start: 20170907

REACTIONS (6)
  - Scab [Not Recovered/Not Resolved]
  - Rash erythematous [Not Recovered/Not Resolved]
  - Scratch [Not Recovered/Not Resolved]
  - Skin bacterial infection [Unknown]
  - Rash papular [Not Recovered/Not Resolved]
  - Skin disorder [Not Recovered/Not Resolved]

NARRATIVE: CASE EVENT DATE: 201811
